FAERS Safety Report 20596738 (Version 1)
Quarter: 2022Q1

REPORT INFORMATION
  Report Type: Spontaneous
  Country: AU (occurrence: AU)
  Receive Date: 20220315
  Receipt Date: 20220315
  Transmission Date: 20220423
  Serious: Yes (Hospitalization)
  Sender: FDA-Public Use
  Company Number: AU-MYLANLABS-2022M1019834

PATIENT
  Age: 59 Year
  Sex: Female

DRUGS (13)
  1. METHOTREXATE [Suspect]
     Active Substance: METHOTREXATE
     Indication: Cutaneous T-cell lymphoma
     Dosage: 15 MILLIGRAM, QW
     Route: 048
     Dates: start: 201605
  2. METHOTREXATE [Suspect]
     Active Substance: METHOTREXATE
     Indication: Prophylaxis against graft versus host disease
     Dosage: 20 MILLIGRAM, QW
     Route: 048
     Dates: start: 201701
  3. CYCLOSPORINE [Suspect]
     Active Substance: CYCLOSPORINE
     Indication: Prophylaxis against graft versus host disease
     Dosage: UNK
     Route: 065
  4. PREDNISOLONE [Suspect]
     Active Substance: PREDNISOLONE
     Indication: Cutaneous T-cell lymphoma
     Dosage: UNK, HIGH DOSE
     Route: 048
     Dates: start: 201904
  5. CYCLOPHOSPHAMIDE [Suspect]
     Active Substance: CYCLOPHOSPHAMIDE
     Indication: Cutaneous T-cell lymphoma
     Dosage: 50 MILLIGRAM, QD
     Route: 048
  6. BETAMETHASONE DIPROPIONATE [Concomitant]
     Active Substance: BETAMETHASONE DIPROPIONATE
     Indication: Cutaneous T-cell lymphoma
     Dosage: UNK
     Route: 065
  7. VORINOSTAT [Concomitant]
     Active Substance: VORINOSTAT
     Indication: Cutaneous T-cell lymphoma
     Dosage: 400 MILLIGRAM, QD
     Route: 048
  8. INTERFERON ALFA-2A [Concomitant]
     Active Substance: INTERFERON ALFA-2A
     Indication: Cutaneous T-cell lymphoma
     Dosage: 3000000 INTERNATIONAL UNIT, TID, 3 TIMES A DAY
     Route: 058
     Dates: start: 201812
  9. PRALATREXATE [Concomitant]
     Active Substance: PRALATREXATE
     Indication: Cutaneous T-cell lymphoma
     Dosage: 10 MILLIGRAM/SQ. METER,ON DAY 1
     Route: 065
  10. PRALATREXATE [Concomitant]
     Active Substance: PRALATREXATE
     Dosage: 20 MILLIGRAM/SQ. METER, ON DAY 8
     Route: 065
  11. PRALATREXATE [Concomitant]
     Active Substance: PRALATREXATE
     Dosage: 30 MILLIGRAM/SQ. METER, CYCLE, ON DAY 15, THEN, ON 1, 8, 15 ON A 28-DAY CYCLE
     Route: 065
  12. PRALATREXATE [Concomitant]
     Active Substance: PRALATREXATE
     Dosage: 25 MILLIGRAM/SQ. METER, ON DAYS 1 AND 15
     Route: 065
  13. ROMIDEPSIN [Concomitant]
     Active Substance: ROMIDEPSIN
     Indication: Cutaneous T-cell lymphoma
     Dosage: 12 MILLIGRAM/SQ. METER
     Route: 065

REACTIONS (1)
  - Treatment failure [Unknown]
